FAERS Safety Report 8708004 (Version 2)
Quarter: 2012Q4

REPORT INFORMATION
  Report Type: Report from Study
  Country: DE (occurrence: DE)
  Receive Date: 20120806
  Receipt Date: 20120928
  Transmission Date: 20130627
  Serious: Yes (Hospitalization, Other)
  Sender: FDA-Public Use
  Company Number: DE-ABBOTT-12P-062-0962134-00

PATIENT
  Age: 24 Year
  Sex: Female
  Weight: 49 kg

DRUGS (6)
  1. HUMIRA 40 MG/ 0.8 ML PRE-FILLED SYRINGE [Suspect]
     Indication: CROHN^S DISEASE
     Route: 058
     Dates: start: 20120615, end: 20120619
  2. HUMIRA 40 MG/ 0.8 ML PRE-FILLED SYRINGE [Suspect]
     Dates: start: 201208
  3. PREDNISOLONE [Concomitant]
     Indication: CROHN^S DISEASE
     Dosage: 10 to 40 mg daily
     Dates: start: 2010, end: 2012
  4. PREDNISOLONE [Concomitant]
     Dosage: 50 mg daily
     Dates: start: 20120712
  5. PANTOPRAZOL [Concomitant]
     Indication: CROHN^S DISEASE
     Dates: start: 2010
  6. IRON [Concomitant]
     Indication: PRODUCT USED FOR UNKNOWN INDICATION
     Route: 048
     Dates: start: 2010

REACTIONS (2)
  - Colitis [Not Recovered/Not Resolved]
  - Colectomy [Not Recovered/Not Resolved]
